FAERS Safety Report 7260419-0 (Version None)
Quarter: 2011Q1

REPORT INFORMATION
  Report Type: 
  Country: None (occurrence: None)
  Receive Date: 20110130
  Receipt Date: 20101020
  Transmission Date: 20110831
  Serious: No
  Sender: FDA-Public Use
  Company Number: US-ABBOTT-10P-163-0679843-00

PATIENT
  Age: 60 Year
  Sex: Male

DRUGS (6)
  1. BALSALAZIDE DISODIUM [Concomitant]
     Indication: PROCTITIS ULCERATIVE
     Dosage: THREE 750MG TABLETS 3 TIMES A DAY
  2. WELLBUTRIN [Concomitant]
     Indication: DEPRESSION
     Dosage: IN THE MORNING
  3. MULTI-VITAMIN [Concomitant]
     Indication: PRODUCT USED FOR UNKNOWN INDICATION
  4. TERAZOSIN [Concomitant]
     Indication: PROSTATOMEGALY
     Dosage: TWO 1MG TABLETS DAILY
  5. HUMIRA [Suspect]
     Indication: CROHN'S DISEASE
     Dosage: 160MG LOADING DOSE
     Dates: start: 20101001, end: 20101001
  6. HUMIRA [Suspect]

REACTIONS (1)
  - INJECTION SITE PAIN [None]
